FAERS Safety Report 10606033 (Version 1)
Quarter: 2014Q4

REPORT INFORMATION
  Report Type: Spontaneous
  Country: US (occurrence: US)
  Receive Date: 20141125
  Receipt Date: 20141125
  Transmission Date: 20150529
  Serious: No
  Sender: FDA-Public Use
  Company Number: US-BIOGENIDEC-2014BI121328

PATIENT
  Age: 24 Year
  Sex: Female

DRUGS (1)
  1. TECFIDERA [Suspect]
     Active Substance: DIMETHYL FUMARATE
     Indication: PRODUCT USED FOR UNKNOWN INDICATION
     Dates: start: 20140301, end: 20141001

REACTIONS (6)
  - Malaise [Unknown]
  - Influenza like illness [Unknown]
  - Swelling [Unknown]
  - Paraesthesia [Unknown]
  - Vomiting [Unknown]
  - Eye swelling [Unknown]

NARRATIVE: CASE EVENT DATE: 2014
